FAERS Safety Report 12281190 (Version 1)
Quarter: 2016Q2

REPORT INFORMATION
  Report Type: Spontaneous
  Country: US (occurrence: None)
  Receive Date: 20160418
  Receipt Date: 20160418
  Transmission Date: 20160815
  Serious: Yes (Other)
  Sender: FDA-Public Use
  Company Number: None

PATIENT
  Age: 15 Year
  Sex: Male
  Weight: 54.43 kg

DRUGS (4)
  1. SAPHRIS [Suspect]
     Active Substance: ASENAPINE MALEATE
     Indication: OBSESSIVE-COMPULSIVE DISORDER
     Route: 060
     Dates: start: 20151212, end: 20151214
  2. VITAMIN C [Concomitant]
     Active Substance: ASCORBIC ACID
  3. SAPHRIS [Suspect]
     Active Substance: ASENAPINE MALEATE
     Indication: PSYCHOTIC DISORDER
     Route: 060
     Dates: start: 20151212, end: 20151214
  4. MULTI VITAMINS [Concomitant]

REACTIONS (6)
  - Pain [None]
  - Muscle spasms [None]
  - Dyspnoea [None]
  - Posture abnormal [None]
  - Drooling [None]
  - Dysstasia [None]

NARRATIVE: CASE EVENT DATE: 20151214
